FAERS Safety Report 8805874 (Version 1)
Quarter: 2012Q4

REPORT INFORMATION
  Report Type: 
  Country: US (occurrence: US)
  Receive Date: 20120925
  Receipt Date: 20120925
  Transmission Date: 20130627
  Serious: Yes (Hospitalization)
  Sender: FDA-Public Use
  Company Number: US-AMGEN-USASP2012060055

PATIENT
  Age: 1 Day
  Sex: Female

DRUGS (2)
  1. ENBREL [Suspect]
     Dosage: 25 UNK, qwk
     Route: 064
     Dates: start: 19991001
  2. ENBREL [Suspect]
     Dosage: 25 UNK, qwk
     Route: 064
     Dates: start: 19991001

REACTIONS (3)
  - Hospitalisation [Recovered/Resolved]
  - Abdominal discomfort [Recovered/Resolved]
  - Vomiting [Recovered/Resolved]
